FAERS Safety Report 9153563 (Version 1)
Quarter: 2013Q1

REPORT INFORMATION
  Report Type: Spontaneous
  Country: US (occurrence: US)
  Receive Date: 20130311
  Receipt Date: 20130311
  Transmission Date: 20140127
  Serious: Yes (Hospitalization)
  Sender: FDA-Public Use
  Company Number: US-BAYER-2013-027744

PATIENT
  Age: 38 Year
  Sex: Female

DRUGS (4)
  1. YAZ [Suspect]
  2. GIANVI [Suspect]
  3. TREXIMET [Concomitant]
     Indication: MIGRAINE
     Dosage: AS NEEDED
     Route: 048
  4. COMPAZINE [Concomitant]
     Indication: MIGRAINE
     Dosage: AS NEEDED
     Route: 048

REACTIONS (1)
  - Deep vein thrombosis [None]
